FAERS Safety Report 15083856 (Version 4)
Quarter: 2018Q3

REPORT INFORMATION
  Report Type: Report from Study
  Country: None (occurrence: GB)
  Receive Date: 20180628
  Receipt Date: 20180724
  Transmission Date: 20181010
  Serious: Yes (Hospitalization)
  Sender: FDA-Public Use
  Company Number: GB-ABBVIE-18K-167-2379353-00

PATIENT
  Sex: Male

DRUGS (7)
  1. DUODOPA [Suspect]
     Active Substance: CARBIDOPA\LEVODOPA
     Indication: PARKINSON^S DISEASE
     Route: 050
  2. DUODOPA [Suspect]
     Active Substance: CARBIDOPA\LEVODOPA
     Dosage: INCREASED AM DOSE AND EXTRA DOSE OF 2 MLS
     Route: 050
  3. DUODOPA [Suspect]
     Active Substance: CARBIDOPA\LEVODOPA
     Dosage: INCREASED THE MD FROM 13.5MLS TO 14.5MLS ?CD INCREASED FROM 5.2MLS/HOUR TO 5.4MLS/HOUR
     Route: 050
  4. DUODOPA [Suspect]
     Active Substance: CARBIDOPA\LEVODOPA
     Route: 050
  5. PRAMIPEXOLE. [Suspect]
     Active Substance: PRAMIPEXOLE
     Indication: PARKINSON^S DISEASE
     Route: 048
     Dates: end: 201806
  6. PRAMIPEXOLE. [Suspect]
     Active Substance: PRAMIPEXOLE
     Route: 048
     Dates: start: 201806
  7. SINEMET [Concomitant]
     Active Substance: CARBIDOPA\LEVODOPA
     Indication: PRODUCT USED FOR UNKNOWN INDICATION

REACTIONS (24)
  - General physical health deterioration [Unknown]
  - Movement disorder [Recovered/Resolved]
  - Stoma site discharge [Unknown]
  - Stoma site pain [Unknown]
  - Device connection issue [Unknown]
  - Pyrexia [Unknown]
  - Kidney infection [Recovered/Resolved]
  - Asthenia [Unknown]
  - On and off phenomenon [Recovered/Resolved]
  - Medical device removal [Unknown]
  - Device dislocation [Unknown]
  - Device dislocation [Unknown]
  - Gait disturbance [Not Recovered/Not Resolved]
  - Constipation [Unknown]
  - Drug effect delayed [Unknown]
  - Urinary tract infection [Unknown]
  - Freezing phenomenon [Unknown]
  - Freezing phenomenon [Not Recovered/Not Resolved]
  - Urinary tract infection [Recovered/Resolved]
  - Fall [Unknown]
  - Stoma site erythema [Unknown]
  - Mobility decreased [Unknown]
  - Gait inability [Unknown]
  - Decreased appetite [Unknown]

NARRATIVE: CASE EVENT DATE: 2018
